FAERS Safety Report 22239046 (Version 1)
Quarter: 2023Q2

REPORT INFORMATION
  Report Type: Spontaneous
  Country: GB (occurrence: None)
  Receive Date: 20230420
  Receipt Date: 20230420
  Transmission Date: 20230721
  Serious: Yes (Hospitalization, Other)
  Sender: FDA-Public Use
  Company Number: None

PATIENT
  Age: 21 Year
  Sex: Male
  Weight: 75 kg

DRUGS (1)
  1. MINOXIDIL [Suspect]
     Active Substance: MINOXIDIL
     Indication: Alopecia
     Dosage: OTHER QUANTITY : 1 DROP(S);?FREQUENCY : TWICE A DAY;?
     Route: 062
     Dates: start: 20220105, end: 20230303

REACTIONS (14)
  - Depression [None]
  - Libido decreased [None]
  - Erectile dysfunction [None]
  - Genital hypoaesthesia [None]
  - Insomnia [None]
  - Middle insomnia [None]
  - Brain fog [None]
  - Depersonalisation/derealisation disorder [None]
  - Panic attack [None]
  - Suicidal ideation [None]
  - Social anxiety disorder [None]
  - Asthenia [None]
  - Rash [None]
  - Skin lesion [None]

NARRATIVE: CASE EVENT DATE: 20230215
